FAERS Safety Report 9801851 (Version 1)
Quarter: 2014Q1

REPORT INFORMATION
  Report Type: Spontaneous
  Country: US (occurrence: US)
  Receive Date: 20140107
  Receipt Date: 20140107
  Transmission Date: 20141002
  Serious: No
  Sender: FDA-Public Use
  Company Number: US-PFIZER INC-2013374556

PATIENT
  Age: 55 Year
  Sex: Male

DRUGS (2)
  1. BOSUTINIB [Suspect]
     Indication: CHRONIC MYELOID LEUKAEMIA
     Dosage: 100 MG, DAILY
  2. BOSUTINIB [Suspect]
     Dosage: 300 MG, DAILY

REACTIONS (1)
  - Haemoptysis [Unknown]
